FAERS Safety Report 11901336 (Version 1)
Quarter: 2016Q1

REPORT INFORMATION
  Report Type: Report from Study
  Country: US (occurrence: US)
  Receive Date: 20160108
  Receipt Date: 20160108
  Transmission Date: 20160526
  Serious: No
  Sender: FDA-Public Use
  Company Number: US-ABBVIE-15P-163-1493855-00

PATIENT
  Sex: Male
  Weight: 59.02 kg

DRUGS (1)
  1. VIEKIRA PAK [Suspect]
     Active Substance: DASABUVIR\OMBITASVIR\PARITAPREVIR\RITONAVIR
     Indication: HEPATITIS C
     Dosage: IN THE AM AND THE PM, PER MANUFACTURERS DIRECTION
     Route: 048
     Dates: start: 20150812

REACTIONS (5)
  - Dry mouth [Unknown]
  - Fatigue [Unknown]
  - Mood swings [Unknown]
  - Memory impairment [Unknown]
  - Headache [Unknown]
